FAERS Safety Report 5373166-7 (Version None)
Quarter: 2007Q2

REPORT INFORMATION
  Report Type: 
  Country: None (occurrence: None)
  Receive Date: 20070627
  Receipt Date: 20070622
  Transmission Date: 20071010
  Serious: Yes (Life-Threatening, Hospitalization)
  Sender: FDA-Public Use
  Company Number: FR-PFIZER INC-2007051466

PATIENT
  Sex: Female

DRUGS (1)
  1. BEAGYNE [Suspect]
     Dosage: DAILY DOSE:150MG
     Dates: start: 20061101, end: 20061101

REACTIONS (1)
  - THROMBOCYTOPENIC PURPURA [None]
